FAERS Safety Report 13573342 (Version 1)
Quarter: 2017Q2

REPORT INFORMATION
  Report Type: Spontaneous
  Country: US (occurrence: US)
  Receive Date: 20170523
  Receipt Date: 20170523
  Transmission Date: 20170830
  Serious: No
  Sender: FDA-Public Use
  Company Number: US-BAYER-2017-096905

PATIENT
  Sex: Female

DRUGS (1)
  1. CLARITIN [Suspect]
     Active Substance: LORATADINE

REACTIONS (7)
  - Muscle spasms [None]
  - Gastrointestinal disorder [None]
  - Headache [None]
  - Dyspnoea [None]
  - Toxicity to various agents [None]
  - Myalgia [None]
  - Fatigue [None]
